FAERS Safety Report 6733938-0 (Version None)
Quarter: 2010Q2

REPORT INFORMATION
  Report Type: 
  Country: None (occurrence: None)
  Receive Date: 20100520
  Receipt Date: 20100512
  Transmission Date: 20101027
  Serious: Yes (Death, Hospitalization)
  Sender: FDA-Public Use
  Company Number: JP-ROCHE-703560

PATIENT
  Sex: Female
  Weight: 45 kg

DRUGS (13)
  1. AVASTIN [Suspect]
     Indication: RECTAL CANCER METASTATIC
     Dosage: FORM: INJECTION
     Route: 041
     Dates: start: 20091209, end: 20100203
  2. TOPOTECAN [Suspect]
     Indication: RECTAL CANCER METASTATIC
     Dosage: FORM: INJECTION, NOTE: DOSAGE IS UNCERTAIN, DRUG NAME: TOPOTECIN(IRINOTECAN HYDROCHLORIDE)
     Route: 041
     Dates: start: 20091209
  3. FLUOROURACIL [Suspect]
     Indication: RECTAL CANCER METASTATIC
     Dosage: FORM: INJECTION, NOTE: DOSAGE IS UNCERTAIN
     Route: 040
     Dates: start: 20091209
  4. FLUOROURACIL [Suspect]
     Dosage: ROUTE: INTRAVENOUS DRIP, FORM: INJECTION, NOTE: DOSAGE IS UNCERTAIN
     Route: 040
     Dates: start: 20091209
  5. LEUCOVORIN CALCIUM [Suspect]
     Indication: RECTAL CANCER METASTATIC
     Dosage: DRUG NAME: LEVOFOLINATE CALCIUM(LEVOFOLINATE CALCIUM), FORM: INJECTION, NOTE: DOSAGE IS UNCERTAIN
     Route: 041
     Dates: start: 20091209
  6. MAGMITT [Concomitant]
     Route: 048
     Dates: start: 20091203, end: 20100222
  7. SODIUM BICARBONATE [Concomitant]
     Dosage: FORM: POWDERED MEDICINE
     Route: 048
     Dates: start: 20091209, end: 20100206
  8. PRIMPERAN TAB [Concomitant]
     Route: 048
     Dates: start: 20091209, end: 20100206
  9. MAGNESIUM OXIDE [Concomitant]
     Dosage: FORM: POWDERED MEDICINE
     Route: 048
     Dates: start: 20091209, end: 20100206
  10. HANGE-SHASHIN-TO [Concomitant]
     Dosage: FORM: POWDERED MEDICINE
     Route: 048
     Dates: start: 20091209, end: 20100206
  11. GRANISETRON [Concomitant]
     Dosage: FORM: INJECTION, DRUG NAME: GRANISETRON (GRANISETRON HYDROCHLORIDE)
     Route: 041
     Dates: start: 20091209, end: 20100203
  12. KYTRIL [Concomitant]
     Route: 048
     Dates: start: 20091210, end: 20100206
  13. CALONAL [Concomitant]
     Route: 048
     Dates: start: 20091210, end: 20100222

REACTIONS (5)
  - HAEMORRHAGE [None]
  - NAUSEA [None]
  - PERITONITIS [None]
  - RECTAL OBSTRUCTION [None]
  - RECTAL PERFORATION [None]
